FAERS Safety Report 4393238-3 (Version None)
Quarter: 2004Q3

REPORT INFORMATION
  Report Type: 
  Country: None (occurrence: None)
  Receive Date: 20040702
  Receipt Date: 20040623
  Transmission Date: 20050211
  Serious: Yes (Other)
  Sender: FDA-Public Use
  Company Number: GB-JNJFOC-20040602026

PATIENT
  Age: 64 Year
  Sex: Female

DRUGS (9)
  1. REMICADE [Suspect]
     Indication: RHEUMATOID ARTHRITIS
     Dosage: 200 MG, INTRAVENOUS
     Route: 042
     Dates: start: 20020806, end: 20040101
  2. METHOTREXATE [Concomitant]
  3. CYCLOSPORINE [Concomitant]
  4. LOSEC (OMEPRAZOLE) [Concomitant]
  5. AMITRIPTYLINE HCL [Concomitant]
  6. FOSAMAX [Concomitant]
  7. FOLIC ACID [Concomitant]
  8. CALCICHEW (CALCIUM CARBONATE) UNKNOWN [Concomitant]
  9. PARACETAMOL (PARACETAMOL) [Concomitant]

REACTIONS (1)
  - DIFFUSE LARGE B-CELL LYMPHOMA [None]
